FAERS Safety Report 5032745-7 (Version None)
Quarter: 2006Q2

REPORT INFORMATION
  Report Type: 
  Country: None (occurrence: None)
  Receive Date: 20060515
  Receipt Date: 20060201
  Transmission Date: 20061013
  Serious: No
  Sender: FDA-Public Use
  Company Number: S06-USA-00379-01

PATIENT
  Sex: Male

DRUGS (1)
  1. NAMENDA [Suspect]

REACTIONS (2)
  - DYSSTASIA [None]
  - TREMOR [None]
